FAERS Safety Report 18157974 (Version 1)
Quarter: 2020Q3

REPORT INFORMATION
  Report Type: Spontaneous
  Country: US (occurrence: US)
  Receive Date: 20200817
  Receipt Date: 20200817
  Transmission Date: 20201103
  Serious: No
  Sender: FDA-Public Use
  Company Number: US-MEDEXUS PHARMA, INC.-2019MED00249

PATIENT
  Age: 10 Year
  Sex: Male

DRUGS (1)
  1. RASUVO [Suspect]
     Active Substance: METHOTREXATE SODIUM
     Indication: JUVENILE IDIOPATHIC ARTHRITIS
     Dosage: 12.5 MG, 1X/WEEK ON FRIDAYS INJECTED INTO LEG
     Dates: start: 2019

REACTIONS (4)
  - Device failure [Recovered/Resolved]
  - Product dose omission issue [Recovered/Resolved]
  - Accidental exposure to product [Recovered/Resolved]
  - Injection site haemorrhage [Unknown]

NARRATIVE: CASE EVENT DATE: 2019
